FAERS Safety Report 15125343 (Version 1)
Quarter: 2018Q3

REPORT INFORMATION
  Report Type: Spontaneous
  Country: US (occurrence: US)
  Receive Date: 20180710
  Receipt Date: 20180710
  Transmission Date: 20181010
  Serious: No
  Sender: FDA-Public Use
  Company Number: US-009507513-1806USA005505

PATIENT
  Age: 44 Year
  Sex: Female
  Weight: 76.19 kg

DRUGS (2)
  1. LEVOTHYROXINE SODIUM. [Concomitant]
     Active Substance: LEVOTHYROXINE SODIUM
  2. NEXPLANON [Suspect]
     Active Substance: ETONOGESTREL
     Indication: CONTRACEPTION
     Dosage: 1 ROD, 3 YEAR IMPLANT, LEFT ARM
     Route: 059
     Dates: start: 20151021

REACTIONS (6)
  - Weight increased [Unknown]
  - Glucose tolerance impaired [Unknown]
  - Thyroid disorder [Unknown]
  - Weight fluctuation [Unknown]
  - Increased tendency to bruise [Unknown]
  - Oropharyngeal pain [Unknown]

NARRATIVE: CASE EVENT DATE: 20180529
